FAERS Safety Report 7918279-8 (Version None)
Quarter: 2011Q4

REPORT INFORMATION
  Report Type: 
  Country: None (occurrence: None)
  Receive Date: 20111116
  Receipt Date: 20111108
  Transmission Date: 20120403
  Serious: Yes (Hospitalization)
  Sender: FDA-Public Use
  Company Number: JP-GLAXOSMITHKLINE-B0761902A

PATIENT
  Age: 77 Year
  Sex: Male

DRUGS (4)
  1. PRAVASTATIN SODIUM [Concomitant]
     Route: 048
  2. NORVASC [Concomitant]
     Route: 048
  3. SUNRYTHM [Concomitant]
     Route: 048
  4. DUTASTERIDE [Suspect]
     Indication: PRODUCT USED FOR UNKNOWN INDICATION
     Dosage: .5MG PER DAY
     Route: 048
     Dates: start: 20111011, end: 20111105

REACTIONS (4)
  - MALAISE [None]
  - HEPATIC FUNCTION ABNORMAL [None]
  - ABASIA [None]
  - DIABETES MELLITUS INADEQUATE CONTROL [None]
